FAERS Safety Report 5557603-0 (Version None)
Quarter: 2007Q4

REPORT INFORMATION
  Report Type: 
  Country: None (occurrence: None)
  Receive Date: 20071214
  Receipt Date: 20071214
  Transmission Date: 20080405
  Serious: Yes (Hospitalization)
  Sender: FDA-Public Use
  Company Number: B0438122A

PATIENT
  Age: 62 Year
  Sex: Female
  Weight: 55 kg

DRUGS (18)
  1. ALKERAN [Suspect]
     Indication: STEM CELL TRANSPLANT
     Dosage: 186MG PER DAY
     Route: 042
     Dates: start: 20030611, end: 20030611
  2. CYCLOPHOSPHAMIDE [Concomitant]
     Indication: STEM CELL TRANSPLANT
     Dosage: 3200MG PER DAY
     Route: 042
     Dates: start: 20030608, end: 20030609
  3. VEPESID [Concomitant]
     Indication: STEM CELL TRANSPLANT
     Dosage: 715MG PER DAY
     Route: 042
     Dates: start: 20030608, end: 20030610
  4. DEXAMETHASONE SODIUM PHOSPHATE [Concomitant]
     Indication: STEM CELL TRANSPLANT
     Dosage: 40MG PER DAY
     Route: 042
     Dates: start: 20030608, end: 20030611
  5. NEUTROGIN [Concomitant]
     Dosage: 250MG PER DAY
     Route: 058
     Dates: start: 20030613, end: 20030624
  6. KYTRIL [Concomitant]
     Dosage: 3ML PER DAY
     Route: 042
     Dates: start: 20030612, end: 20030612
  7. SOLU-MEDROL [Concomitant]
     Dosage: 125MG PER DAY
     Route: 042
     Dates: start: 20030612, end: 20030612
  8. LASIX [Concomitant]
     Dosage: 20MG PER DAY
     Dates: start: 20030612, end: 20030613
  9. MEROPEN [Concomitant]
     Dosage: 2G PER DAY
     Route: 042
     Dates: start: 20030617, end: 20030630
  10. AMIKACIN SULFATE [Concomitant]
     Dosage: 200MG PER DAY
     Dates: start: 20030619, end: 20030630
  11. IMMUNE GLOBULIN INTRAVENOUS (HUMAN) [Concomitant]
     Dosage: 5G PER DAY
     Route: 042
     Dates: start: 20030715, end: 20030715
  12. FAMOTIDINE [Concomitant]
     Dosage: 40MG PER DAY
     Route: 048
     Dates: start: 20030611
  13. GASLON N [Concomitant]
     Dosage: 4MG PER DAY
     Route: 048
     Dates: start: 20030611
  14. DIFLUCAN [Concomitant]
     Dosage: 200MG PER DAY
     Route: 048
     Dates: start: 20030611, end: 20030703
  15. ZOVIRAX [Concomitant]
     Dosage: 1000MG PER DAY
     Route: 048
     Dates: start: 20030611, end: 20030703
  16. CRAVIT [Concomitant]
     Dosage: 300MG PER DAY
     Route: 048
     Dates: start: 20030611, end: 20030620
  17. BAKTAR [Concomitant]
     Route: 048
     Dates: start: 20030703
  18. LENDORMIN [Concomitant]
     Dosage: .25MG PER DAY
     Route: 048
     Dates: start: 20030715

REACTIONS (2)
  - FEBRILE NEUTROPENIA [None]
  - SEPSIS [None]
